FAERS Safety Report 25658311 (Version 1)
Quarter: 2025Q3

REPORT INFORMATION
  Report Type: Spontaneous
  Country: US (occurrence: US)
  Receive Date: 20250808
  Receipt Date: 20250808
  Transmission Date: 20251020
  Serious: No
  Sender: Kenvue
  Company Number: US-KENVUE-20250802007

PATIENT
  Sex: Female

DRUGS (2)
  1. TYLENOL 8 HR ARTHRITIS PAIN [Suspect]
     Active Substance: ACETAMINOPHEN
     Indication: Pain
     Dosage: 2 DOSAGE FORM, TWICE A DAY
     Route: 065
     Dates: start: 20240408
  2. Unspecified Tylenol cream [Concomitant]
     Indication: Product used for unknown indication
     Route: 065

REACTIONS (1)
  - Inappropriate schedule of product administration [Unknown]
